FAERS Safety Report 18330439 (Version 2)
Quarter: 2020Q4

REPORT INFORMATION
  Report Type: Spontaneous
  Country: JP (occurrence: JP)
  Receive Date: 20200930
  Receipt Date: 20201215
  Transmission Date: 20210113
  Serious: Yes (Hospitalization)
  Sender: FDA-Public Use
  Company Number: JP-AMGEN-JPNSP2020158294

PATIENT
  Sex: Male

DRUGS (3)
  1. CORALAN [Suspect]
     Active Substance: IVABRADINE HYDROCHLORIDE
     Indication: CARDIAC FAILURE CHRONIC
     Dosage: UNK
     Route: 048
  2. LIXIANA [Concomitant]
     Active Substance: EDOXABAN TOSYLATE
     Dosage: UNK
     Route: 048
  3. LIXIANA [Concomitant]
     Active Substance: EDOXABAN TOSYLATE
     Indication: ATRIAL FIBRILLATION
     Dosage: UNK
     Route: 048

REACTIONS (2)
  - Feeding disorder [Unknown]
  - Hypoglycaemia [Unknown]

NARRATIVE: CASE EVENT DATE: 2020
